FAERS Safety Report 10057022 (Version 2)
Quarter: 2014Q2

REPORT INFORMATION
  Report Type: Spontaneous
  Country: GB (occurrence: GB)
  Receive Date: 20140403
  Receipt Date: 20140403
  Transmission Date: 20141212
  Serious: Yes (Death, Other)
  Sender: FDA-Public Use
  Company Number: GB-ACTAVIS-2009B-07268

PATIENT
  Age: 66 Year
  Sex: Female

DRUGS (9)
  1. OXALIPLATIN (UNKNOWN) [Suspect]
     Indication: COLORECTAL CANCER METASTATIC
     Dosage: 200 MG, UNK; EVERY 21/7
     Route: 042
     Dates: start: 20090119
  2. AVASTIN                            /01555201/ [Suspect]
     Indication: COLORECTAL CANCER METASTATIC
     Dosage: UNK
     Route: 065
  3. XELODA [Suspect]
     Indication: COLORECTAL CANCER METASTATIC
     Dosage: 1650 MG, BID
     Route: 048
     Dates: start: 20090119, end: 20090221
  4. NEUPOGEN [Concomitant]
     Indication: NEUTROPENIA
     Dosage: UNK
     Route: 065
  5. BUSCOPAN [Concomitant]
     Indication: PRODUCT USED FOR UNKNOWN INDICATION
     Dosage: 6 ?G, UNK
     Route: 065
  6. HALOPERIDOL [Concomitant]
     Indication: PRODUCT USED FOR UNKNOWN INDICATION
     Dosage: 1 MG, UNK
     Route: 065
     Dates: start: 20090225, end: 20090301
  7. CIPROFLOXACIN [Concomitant]
     Indication: PRODUCT USED FOR UNKNOWN INDICATION
     Dosage: 400 MG, UNK
     Route: 042
     Dates: start: 20090221, end: 20090301
  8. MORPHINE [Concomitant]
     Indication: PRODUCT USED FOR UNKNOWN INDICATION
     Dosage: UNK
     Route: 065
  9. CEFUROXIME [Concomitant]
     Indication: PYREXIA
     Dosage: 750 MG, UNK
     Route: 042

REACTIONS (3)
  - Colitis ischaemic [Fatal]
  - Diarrhoea [Unknown]
  - Migraine [Not Recovered/Not Resolved]
